FAERS Safety Report 9201270 (Version 1)
Quarter: 2013Q2

REPORT INFORMATION
  Report Type: Spontaneous
  Country: BR (occurrence: BR)
  Receive Date: 20130401
  Receipt Date: 20130401
  Transmission Date: 20140414
  Serious: Yes (Other)
  Sender: FDA-Public Use
  Company Number: PHHY2013BR030986

PATIENT
  Sex: Female

DRUGS (5)
  1. FORASEQ [Suspect]
     Indication: PNEUMONIA
     Dosage: 12/400 MCG TWICE DAILY
  2. FORASEQ [Suspect]
     Indication: DYSPNOEA
  3. METFORMIN [Concomitant]
     Indication: DIABETES MELLITUS
     Dosage: 2 TABLET  (850 MG) DAILY
     Route: 048
  4. LOSARTAN [Concomitant]
     Indication: HYPERTENSION
     Dosage: 1 DF, DAILY
     Route: 048
  5. FUROSEMIDE [Concomitant]
     Dosage: 40 MG, DAILY
     Route: 048

REACTIONS (1)
  - Glaucoma [Not Recovered/Not Resolved]
